FAERS Safety Report 7835932-5 (Version None)
Quarter: 2011Q4

REPORT INFORMATION
  Report Type: 
  Country: None (occurrence: None)
  Receive Date: 20111024
  Receipt Date: 20101104
  Transmission Date: 20120403
  Serious: No
  Sender: FDA-Public Use
  Company Number: US-ABBOTT-07P-163-0534131-00

PATIENT
  Sex: Female
  Weight: 69.008 kg

DRUGS (12)
  1. PRAVASTATIN [Concomitant]
     Indication: PRODUCT USED FOR UNKNOWN INDICATION
  2. BACTRIM [Concomitant]
     Indication: BRONCHITIS
     Route: 048
  3. ROBAXIN [Concomitant]
     Indication: PRODUCT USED FOR UNKNOWN INDICATION
     Dosage: 1 TABLET THREE TIMES A DAY AS NEEDED
  4. PRILOSEC [Concomitant]
     Indication: PRODUCT USED FOR UNKNOWN INDICATION
  5. LUPRON DEPOT [Suspect]
     Indication: UTERINE LEIOMYOMA
     Route: 030
     Dates: start: 19940101, end: 19940101
  6. LOPID [Concomitant]
     Indication: PRODUCT USED FOR UNKNOWN INDICATION
     Dates: start: 20030908
  7. ZANTAC [Concomitant]
     Indication: PRODUCT USED FOR UNKNOWN INDICATION
  8. OX [Concomitant]
     Indication: MUSCULOSKELETAL CHEST PAIN
  9. ACTONEL WITH CALCIUM (COPACKAGED) [Concomitant]
     Indication: PRODUCT USED FOR UNKNOWN INDICATION
  10. LUPRON DEPOT [Suspect]
     Indication: PROPHYLAXIS
  11. VIOXX [Concomitant]
     Indication: PRODUCT USED FOR UNKNOWN INDICATION
  12. FOSAMAX [Concomitant]
     Indication: OSTEOPOROSIS
     Route: 048

REACTIONS (31)
  - ARTHRALGIA [None]
  - CHEST PAIN [None]
  - NASOPHARYNGITIS [None]
  - ADVERSE DRUG REACTION [None]
  - UNEVALUABLE EVENT [None]
  - CARPAL TUNNEL SYNDROME [None]
  - MUSCULOSKELETAL PAIN [None]
  - MUSCLE SPASMS [None]
  - DYSPEPSIA [None]
  - MEMORY IMPAIRMENT [None]
  - ABDOMINAL PAIN UPPER [None]
  - BONE PAIN [None]
  - TOOTH LOSS [None]
  - MUSCULOSKELETAL CHEST PAIN [None]
  - TENDON PAIN [None]
  - DYSPHONIA [None]
  - INJURY ASSOCIATED WITH DEVICE [None]
  - NECK PAIN [None]
  - OSTEOPOROSIS [None]
  - HYPERLIPIDAEMIA [None]
  - MASS [None]
  - ABDOMINAL DISTENSION [None]
  - PAIN IN EXTREMITY [None]
  - UTERINE LEIOMYOMA [None]
  - CONSTIPATION [None]
  - BACK PAIN [None]
  - MYALGIA [None]
  - HEPATITIS B [None]
  - HIATUS HERNIA [None]
  - MUSCULOSKELETAL STIFFNESS [None]
  - BURSITIS [None]
